FAERS Safety Report 8604222-5 (Version None)
Quarter: 2012Q3

REPORT INFORMATION
  Report Type: 
  Country: None (occurrence: None)
  Receive Date: 20120820
  Receipt Date: 20120815
  Transmission Date: 20120928
  Serious: Yes (Other)
  Sender: FDA-Public Use
  Company Number: US-PFIZER INC-2012200156

PATIENT

DRUGS (1)
  1. METHYLPREDNISOLONE ACETATE [Suspect]
     Dosage: UNK
     Route: 037

REACTIONS (2)
  - INCORRECT ROUTE OF DRUG ADMINISTRATION [None]
  - ARACHNOIDITIS [None]
